FAERS Safety Report 5709126-3 (Version None)
Quarter: 2008Q2

REPORT INFORMATION
  Report Type: 
  Country: None (occurrence: None)
  Receive Date: 20080416
  Receipt Date: 20080416
  Transmission Date: 20081010
  Serious: Yes (Other)
  Sender: FDA-Public Use
  Company Number: None

PATIENT
  Age: 8 Year
  Sex: Male
  Weight: 24.9478 kg

DRUGS (2)
  1. SINGULAIR [Suspect]
     Indication: ASTHMA
     Dosage: 1 TABLET AT NIGHT PO
     Route: 048
     Dates: start: 20080310, end: 20080413
  2. SINGULAIR [Suspect]
     Indication: SEASONAL ALLERGY
     Dosage: 1 TABLET AT NIGHT PO
     Route: 048
     Dates: start: 20080310, end: 20080413

REACTIONS (6)
  - ABNORMAL BEHAVIOUR [None]
  - AGGRESSION [None]
  - EDUCATIONAL PROBLEM [None]
  - MIDDLE INSOMNIA [None]
  - SCREAMING [None]
  - SLEEP DISORDER [None]
